FAERS Safety Report 9982203 (Version 1)
Quarter: 2014Q1

REPORT INFORMATION
  Report Type: Spontaneous
  Country: US (occurrence: None)
  Receive Date: 20140127
  Receipt Date: 20140127
  Transmission Date: 20141002
  Serious: Yes (Hospitalization)
  Sender: FDA-Public Use
  Company Number: 1231305

PATIENT
  Sex: Female

DRUGS (2)
  1. RITUXAN (RITUXIMAB) (INFUSION) [Suspect]
     Indication: SJOGREN^S SYNDROME
     Route: 042
  2. PREDNISONE (PREDNISONE) [Concomitant]

REACTIONS (2)
  - Anaphylactic reaction [None]
  - Rash [None]
